FAERS Safety Report 16514585 (Version 1)
Quarter: 2019Q3

REPORT INFORMATION
  Report Type: Report from Study
  Country: SE (occurrence: SE)
  Receive Date: 20190702
  Receipt Date: 20190702
  Transmission Date: 20191004
  Serious: Yes (Hospitalization, Other)
  Sender: FDA-Public Use
  Company Number: SE-LEADING PHARMA, LLC-2070196

PATIENT
  Age: 80 Year
  Sex: Male

DRUGS (1)
  1. FUROSEMIDE TABLETS , 20 MG, 40 MG AND 80 MG [Suspect]
     Active Substance: FUROSEMIDE
     Indication: PRODUCT USED FOR UNKNOWN INDICATION

REACTIONS (2)
  - Fall [None]
  - Hypotonia [Unknown]
